FAERS Safety Report 21087698 (Version 1)
Quarter: 2022Q3

REPORT INFORMATION
  Report Type: Spontaneous
  Country: AE (occurrence: AE)
  Receive Date: 20220715
  Receipt Date: 20220715
  Transmission Date: 20221027
  Serious: Yes (Other)
  Sender: FDA-Public Use
  Company Number: AE-NOVARTISPH-NVSC2022AE089590

PATIENT
  Age: 60 Year
  Sex: Female

DRUGS (3)
  1. BEOVU [Suspect]
     Active Substance: BROLUCIZUMAB-DBLL
     Indication: Neovascular age-related macular degeneration
     Dosage: 6 MG, PRN (LEFT EYE, 6 MG/0.05 ML)
     Route: 047
     Dates: start: 20210620
  2. BEOVU [Suspect]
     Active Substance: BROLUCIZUMAB-DBLL
     Dosage: 6 MG, PRN (6 MG/0.05 ML) (2ND INJECTION)
     Route: 047
     Dates: start: 20210811
  3. BEOVU [Suspect]
     Active Substance: BROLUCIZUMAB-DBLL
     Dosage: 6 MG, PRN (6 MG/0.05 ML) (THIRD INJECTION)
     Route: 047
     Dates: start: 20220206

REACTIONS (5)
  - Subretinal fluid [Unknown]
  - Macular oedema [Unknown]
  - Anterior chamber cell [Recovered/Resolved]
  - Ocular hyperaemia [Recovered/Resolved]
  - Eye pain [Recovered/Resolved]

NARRATIVE: CASE EVENT DATE: 20210702
